FAERS Safety Report 8558915-9 (Version None)
Quarter: 2012Q3

REPORT INFORMATION
  Report Type: 
  Country: None (occurrence: None)
  Receive Date: 20120802
  Receipt Date: 20120727
  Transmission Date: 20120928
  Serious: Yes (Other)
  Sender: FDA-Public Use
  Company Number: US-AMGEN-USASP2012029580

PATIENT
  Age: 56 Year
  Sex: Male

DRUGS (8)
  1. LAMIVUDINE [Concomitant]
  2. ZIDOVUDINE [Concomitant]
  3. NPLATE [Suspect]
     Indication: IDIOPATHIC THROMBOCYTOPENIC PURPURA
     Dosage: 5 MUG/KG, UNK
     Dates: start: 20120329
  4. IRON [Concomitant]
  5. TYLENOL (CAPLET) [Concomitant]
  6. EFAVIRENZ [Concomitant]
  7. FOLIC ACID [Concomitant]
  8. COLACE [Concomitant]

REACTIONS (1)
  - THERAPEUTIC RESPONSE DECREASED [None]
